APPROVED DRUG PRODUCT: CHLORZOXAZONE
Active Ingredient: CHLORZOXAZONE
Strength: 250MG
Dosage Form/Route: TABLET;ORAL
Application: A089592 | Product #001
Applicant: PIONEER PHARMACEUTICALS INC
Approved: Jan 6, 1989 | RLD: No | RS: No | Type: DISCN